FAERS Safety Report 25811800 (Version 1)
Quarter: 2025Q3

REPORT INFORMATION
  Report Type: Spontaneous
  Country: US (occurrence: US)
  Receive Date: 20250917
  Receipt Date: 20250917
  Transmission Date: 20251021
  Serious: No
  Sender: CIPLA
  Company Number: US-CIPLA LTD.-2025US11416

PATIENT

DRUGS (8)
  1. GABAPENTIN [Interacting]
     Active Substance: GABAPENTIN
     Indication: Back pain
     Dosage: 300 MILLIGRAM, QD
     Route: 048
     Dates: start: 202508, end: 202508
  2. GABAPENTIN [Interacting]
     Active Substance: GABAPENTIN
     Indication: Arthralgia
  3. GABAPENTIN [Interacting]
     Active Substance: GABAPENTIN
     Indication: Nerve injury
  4. ATORVASTATIN [Interacting]
     Active Substance: ATORVASTATIN
     Indication: Product used for unknown indication
     Route: 065
  5. GLIPIZIDE [Interacting]
     Active Substance: GLIPIZIDE
     Indication: Product used for unknown indication
     Dosage: UNK, QD (EVERY DAY IN MORNING)
     Route: 065
  6. ASPIRIN [Interacting]
     Active Substance: ASPIRIN
     Indication: Product used for unknown indication
     Route: 065
  7. FUROSEMIDE [Interacting]
     Active Substance: FUROSEMIDE
     Indication: Fluid retention
     Route: 065
  8. LOSARTAN [Interacting]
     Active Substance: LOSARTAN
     Indication: Product used for unknown indication
     Route: 065

REACTIONS (8)
  - Rash [Recovered/Resolved]
  - Swelling [Recovered/Resolved]
  - Pruritus [Recovered/Resolved]
  - Erythema [Recovered/Resolved]
  - Hypersomnia [Recovered/Resolved]
  - Product administration error [Unknown]
  - Drug interaction [Unknown]
  - Off label use [Unknown]

NARRATIVE: CASE EVENT DATE: 20250801
